FAERS Safety Report 9547661 (Version 1)
Quarter: 2013Q3

REPORT INFORMATION
  Report Type: Spontaneous
  Country: US (occurrence: US)
  Receive Date: 20130924
  Receipt Date: 20130924
  Transmission Date: 20140515
  Serious: No
  Sender: FDA-Public Use
  Company Number: US-009507513-1309USA009905

PATIENT
  Sex: Male
  Weight: 83.45 kg

DRUGS (7)
  1. VICTRELIS [Suspect]
     Dosage: TAKE 800MG (FOUR 200MG CAPSULES) BY MOUTH THREE TIMES A DAY (EVERY 7-9 HOURS) WITH FOOD.
     Route: 048
  2. RIBAPAK [Suspect]
     Dosage: DOSE: 1200/DAY
  3. PEGASYS [Suspect]
     Dosage: DOSE: 180 MCG/M
  4. PROCRIT [Concomitant]
     Dosage: DOSE: 40000/ML
  5. VITAMIN E [Concomitant]
     Dosage: DOSE: 1000 UNIT
  6. PROMACTA [Concomitant]
  7. NEUPOGEN [Concomitant]

REACTIONS (4)
  - Laboratory test abnormal [Unknown]
  - White blood cell count decreased [Unknown]
  - Red blood cell count decreased [Unknown]
  - Platelet count decreased [Unknown]
